FAERS Safety Report 9146606 (Version 1)
Quarter: 2013Q1

REPORT INFORMATION
  Report Type: Report from Study
  Country: CA (occurrence: CA)
  Receive Date: 20130307
  Receipt Date: 20130307
  Transmission Date: 20140127
  Serious: Yes (Other)
  Sender: FDA-Public Use
  Company Number: CA-JNJFOC-20130217136

PATIENT
  Sex: Male
  Weight: 109 kg

DRUGS (7)
  1. REMICADE [Suspect]
     Indication: ANKYLOSING SPONDYLITIS
     Dosage: FREQUENCY: ^Q 6 H^??36TH INFUSION
     Route: 042
     Dates: start: 20130115
  2. REMICADE [Suspect]
     Indication: ANKYLOSING SPONDYLITIS
     Dosage: FREQUENCY: ^Q 6 H^
     Route: 042
     Dates: start: 20081231
  3. KETOPROFEN [Concomitant]
     Route: 065
  4. LOSEC [Concomitant]
     Route: 065
  5. ALLOPURINOL [Concomitant]
     Route: 065
  6. SYNTHROID [Concomitant]
     Route: 065
  7. METHOTREXATE [Concomitant]
     Route: 048

REACTIONS (4)
  - Arthralgia [Not Recovered/Not Resolved]
  - Mobility decreased [Not Recovered/Not Resolved]
  - Back pain [Not Recovered/Not Resolved]
  - Drug ineffective [Not Recovered/Not Resolved]
